FAERS Safety Report 9999158 (Version 1)
Quarter: 2014Q1

REPORT INFORMATION
  Report Type: Spontaneous
  Country: US (occurrence: None)
  Receive Date: 20140311
  Receipt Date: 20140311
  Transmission Date: 20141002
  Serious: Yes (Disabling, Other)
  Sender: FDA-Public Use
  Company Number: None

PATIENT
  Age: 53 Year
  Sex: Male
  Weight: 130.18 kg

DRUGS (2)
  1. CHLORHEXIDINE GLUCONATE [Suspect]
     Indication: BACTERIAL INFECTION
     Dosage: APPLIED TO A SURFACE, USUALLY THE SKIN
  2. CHLORHEXIDINE GLUCONATE [Suspect]
     Indication: PROPHYLAXIS
     Dosage: APPLIED TO A SURFACE, USUALLY THE SKIN

REACTIONS (6)
  - Libido decreased [None]
  - Anxiety [None]
  - Drug ineffective [None]
  - Erectile dysfunction [None]
  - Feeling of despair [None]
  - Erectile dysfunction [None]
